FAERS Safety Report 4753350-3 (Version None)
Quarter: 2005Q3

REPORT INFORMATION
  Report Type: 
  Country: None (occurrence: None)
  Receive Date: 20050826
  Receipt Date: 20050817
  Transmission Date: 20060218
  Serious: Yes (Hospitalization)
  Sender: FDA-Public Use
  Company Number: US-JNJFOC-20050700756

PATIENT
  Sex: Male

DRUGS (12)
  1. REMICADE [Suspect]
     Route: 042
  2. REMICADE [Suspect]
     Route: 042
  3. REMICADE [Suspect]
     Indication: RHEUMATOID ARTHRITIS
     Route: 042
  4. METHOTREXATE [Concomitant]
  5. PREDNISONE TAB [Concomitant]
  6. COZAAR [Concomitant]
  7. HYDROCHLOROTHIAZIDE [Concomitant]
     Dosage: 50/12.5
  8. NAPROSYN [Concomitant]
  9. PROTONIX [Concomitant]
  10. ZYRTEC [Concomitant]
  11. NASONEX [Concomitant]
  12. ACTONEL [Concomitant]

REACTIONS (2)
  - COLITIS ISCHAEMIC [None]
  - DEMYELINATION [None]
